FAERS Safety Report 22636323 (Version 2)
Quarter: 2023Q2

REPORT INFORMATION
  Report Type: Spontaneous
  Country: NL (occurrence: NL)
  Receive Date: 20230623
  Receipt Date: 20230628
  Transmission Date: 20230721
  Serious: Yes (Life-Threatening, Hospitalization, Other)
  Sender: FDA-Public Use
  Company Number: None

PATIENT
  Sex: Female
  Weight: 111 kg

DRUGS (1)
  1. INSULIN GLARGINE [Suspect]
     Active Substance: INSULIN GLARGINE
     Indication: Gestational diabetes
     Dosage: 21 U, DAILY
     Route: 065
     Dates: start: 20230126, end: 20230207

REACTIONS (2)
  - Starvation ketoacidosis [Recovered/Resolved]
  - Maternal exposure during pregnancy [Unknown]
